FAERS Safety Report 25690304 (Version 1)
Quarter: 2025Q3

REPORT INFORMATION
  Report Type: Spontaneous
  Country: US (occurrence: None)
  Receive Date: 20250815
  Receipt Date: 20250815
  Transmission Date: 20251021
  Serious: Yes (Hospitalization)
  Sender: FDA-CTU
  Company Number: None

PATIENT
  Age: 83 Year
  Sex: Male

DRUGS (1)
  1. LENALIDOMIDE [Suspect]
     Active Substance: LENALIDOMIDE
     Dosage: FREQUENCY : DAILY;?

REACTIONS (6)
  - Therapy interrupted [None]
  - Pain [None]
  - Asthenia [None]
  - Gait inability [None]
  - Haemorrhage [None]
  - Transfusion [None]
